FAERS Safety Report 23779320 (Version 1)
Quarter: 2024Q2

REPORT INFORMATION
  Report Type: Spontaneous
  Country: US (occurrence: US)
  Receive Date: 20240424
  Receipt Date: 20240424
  Transmission Date: 20240716
  Serious: No
  Sender: FDA-Public Use
  Company Number: US-MYLANLABS-2024M1032110

PATIENT
  Sex: Female
  Weight: 58.29 kg

DRUGS (1)
  1. ESTRADIOL [Suspect]
     Active Substance: ESTRADIOL
     Indication: Vaginal haemorrhage
     Dosage: 0.5 GRAM (TWICE A WEEK)
     Route: 067

REACTIONS (2)
  - Device delivery system issue [Unknown]
  - Off label use [Unknown]
